FAERS Safety Report 6999141-4 (Version None)
Quarter: 2010Q3

REPORT INFORMATION
  Report Type: 
  Country: None (occurrence: None)
  Receive Date: 20100920
  Receipt Date: 20091027
  Transmission Date: 20110219
  Serious: No
  Sender: FDA-Public Use
  Company Number: US-ASTRAZENECA-2009SE22871

PATIENT
  Age: 7 Year
  Sex: Male
  Weight: 21.8 kg

DRUGS (13)
  1. SEROQUEL [Suspect]
     Route: 048
     Dates: start: 20080101
  2. SEROQUEL [Suspect]
     Route: 048
  3. VYVANSE [Suspect]
     Indication: ATTENTION DEFICIT/HYPERACTIVITY DISORDER
     Route: 048
     Dates: end: 20080101
  4. VYVANSE [Suspect]
     Route: 048
     Dates: start: 20080101, end: 20090501
  5. VYVANSE [Suspect]
     Route: 048
     Dates: start: 20080101, end: 20090501
  6. VYVANSE [Suspect]
     Route: 048
     Dates: start: 20090501, end: 20091014
  7. VYVANSE [Suspect]
     Route: 048
     Dates: start: 20090501, end: 20091014
  8. VYVANSE [Suspect]
     Route: 048
     Dates: start: 20091015
  9. RISPERDAL [Suspect]
     Indication: AGGRESSION
     Route: 048
     Dates: end: 20090801
  10. ABILIFY [Suspect]
     Indication: AGGRESSION
     Dosage: UNKNOWN DOSE DAILY
     Route: 048
     Dates: start: 20090801
  11. STRATTERA [Concomitant]
  12. CELEXA [Concomitant]
  13. RITALIN [Concomitant]

REACTIONS (12)
  - AGGRESSION [None]
  - ANGER [None]
  - BLOOD GLUCOSE DECREASED [None]
  - COMMUNICATION DISORDER [None]
  - FLUSHING [None]
  - HALLUCINATION [None]
  - HYPOPHAGIA [None]
  - OVERDOSE [None]
  - PARANOIA [None]
  - SOCIAL AVOIDANT BEHAVIOUR [None]
  - TIC [None]
  - WRONG TECHNIQUE IN DRUG USAGE PROCESS [None]
